FAERS Safety Report 9354165 (Version 2)
Quarter: 2013Q2

REPORT INFORMATION
  Report Type: Spontaneous
  Country: IT (occurrence: None)
  Receive Date: 20130613
  Receipt Date: 20130618
  Transmission Date: 20140414
  Serious: Yes (Other)
  Sender: FDA-Public Use
  Company Number: AUR-APL-2013-04869

PATIENT
  Age: 76 Year
  Sex: Male

DRUGS (8)
  1. AMLODIPINE [Suspect]
     Indication: HYPERTENSION
     Dosage: (10 MG, 1 IN 1 D)
     Route: 048
     Dates: start: 20130403, end: 20130517
  2. RAMIPRIL [Suspect]
     Indication: HYPERTENSION
     Dosage: (5 MG, 1 IN 1 D)
     Route: 048
     Dates: start: 20130403, end: 20130517
  3. METHYLPREDNISOLONE [Concomitant]
  4. EXPOSE [Concomitant]
  5. BETAMETHASONE [Concomitant]
  6. PREGABALIN [Concomitant]
  7. LEVOCARNITINE [Concomitant]
  8. OMEPRAZOLE [Concomitant]

REACTIONS (3)
  - Hypotension [None]
  - Presyncope [None]
  - Pain [None]
